FAERS Safety Report 7483965-3 (Version None)
Quarter: 2011Q2

REPORT INFORMATION
  Report Type: 
  Country: None (occurrence: None)
  Receive Date: 20110517
  Receipt Date: 20110505
  Transmission Date: 20111010
  Serious: Yes (Other)
  Sender: FDA-Public Use
  Company Number: CH-JNJFOC-20110502190

PATIENT
  Age: 47 Year
  Sex: Female

DRUGS (5)
  1. TOPAMAX [Suspect]
     Route: 048
     Dates: start: 20110415, end: 20110421
  2. VIMPAT [Concomitant]
     Indication: EPILEPSY
     Dosage: 1-0-1
     Route: 065
     Dates: start: 20110318
  3. URBANYL [Concomitant]
     Indication: EPILEPSY
     Dosage: 1-0-2
     Route: 065
     Dates: start: 20110101
  4. KEPPRA [Concomitant]
     Indication: EPILEPSY
     Dosage: 1-0-1
     Route: 065
     Dates: start: 20101001
  5. TOPAMAX [Suspect]
     Indication: EPILEPSY
     Route: 048
     Dates: start: 20110422

REACTIONS (1)
  - MASTITIS [None]
